FAERS Safety Report 9586474 (Version 1)
Quarter: 2013Q4

REPORT INFORMATION
  Report Type: Report from Study
  Country: US (occurrence: US)
  Receive Date: 20131003
  Receipt Date: 20131003
  Transmission Date: 20140711
  Serious: Yes (Other)
  Sender: FDA-Public Use
  Company Number: PHEH2013US020503

PATIENT
  Age: 38 Year
  Sex: Male

DRUGS (1)
  1. MYFORTIC [Suspect]
     Dosage: 720 MG, BID (2 TABLETS OF 360 MG)
     Route: 048

REACTIONS (1)
  - Deafness [Unknown]
